FAERS Safety Report 18372761 (Version 3)
Quarter: 2021Q2

REPORT INFORMATION
  Report Type: Spontaneous
  Country: US (occurrence: US)
  Receive Date: 20201012
  Receipt Date: 20210410
  Transmission Date: 20210717
  Serious: No
  Sender: FDA-Public Use
  Company Number: US-LUPIN PHARMACEUTICALS INC.-2020-05312

PATIENT
  Age: 42 Year
  Sex: Female
  Weight: 30.39 kg

DRUGS (1)
  1. OXYCODONE HYDROCHLORIDE TABLETS USP, 5 MG [Suspect]
     Active Substance: OXYCODONE HYDROCHLORIDE
     Indication: BACK PAIN
     Dosage: 7.5 MILLIGRAM, QID
     Route: 048
     Dates: start: 20200819

REACTIONS (3)
  - Pain [Recovering/Resolving]
  - Drug ineffective [Unknown]
  - Product substitution issue [Unknown]

NARRATIVE: CASE EVENT DATE: 20200819
